FAERS Safety Report 24573721 (Version 2)
Quarter: 2024Q4

REPORT INFORMATION
  Report Type: Spontaneous
  Country: US (occurrence: US)
  Receive Date: 20241103
  Receipt Date: 20241114
  Transmission Date: 20250114
  Serious: No
  Sender: ELI LILLY AND COMPANY
  Company Number: US-ELI_LILLY_AND_COMPANY-US202411000182

PATIENT
  Age: 69 Year
  Sex: Female

DRUGS (2)
  1. VERZENIO [Suspect]
     Active Substance: ABEMACICLIB
     Indication: Breast cancer female
     Dosage: 150 MG, BID
     Route: 048
  2. TAMOXIFEN [Concomitant]
     Active Substance: TAMOXIFEN
     Indication: Breast cancer female

REACTIONS (11)
  - Muscle spasms [Unknown]
  - Hot flush [Unknown]
  - Chills [Unknown]
  - Mood swings [Unknown]
  - Insomnia [Unknown]
  - Constipation [Unknown]
  - Weight decreased [Unknown]
  - Abdominal pain [Unknown]
  - Nasopharyngitis [Unknown]
  - Diarrhoea [Unknown]
  - Decreased appetite [Unknown]
